FAERS Safety Report 7645787-X (Version None)
Quarter: 2011Q3

REPORT INFORMATION
  Report Type: 
  Country: None (occurrence: None)
  Receive Date: 20110729
  Receipt Date: 20110720
  Transmission Date: 20111222
  Serious: Yes (Hospitalization)
  Sender: FDA-Public Use
  Company Number: CH-ASTRAZENECA-2011SE43909

PATIENT
  Age: 71 Year
  Sex: Male

DRUGS (4)
  1. LORAZEPAM [Suspect]
     Indication: BIPOLAR DISORDER
     Dosage: 1 MG: 1-1-1-1
     Route: 048
  2. ZOLOFT [Suspect]
     Indication: BIPOLAR DISORDER
     Dosage: 25 MG: 1-0-0
     Route: 048
  3. HALDOL [Suspect]
     Indication: BIPOLAR DISORDER
     Dosage: 5 MG: 1-0-1
     Route: 048
  4. SEROQUEL [Suspect]
     Indication: BIPOLAR DISORDER
     Dosage: 2 DF DAILY: 0-0-2
     Route: 048

REACTIONS (4)
  - ACCIDENTAL OVERDOSE [None]
  - MENTAL DISORDER [None]
  - SOMNOLENCE [None]
  - LOSS OF CONSCIOUSNESS [None]
